FAERS Safety Report 20311238 (Version 3)
Quarter: 2022Q3

REPORT INFORMATION
  Report Type: Spontaneous
  Country: US (occurrence: US)
  Receive Date: 20220107
  Receipt Date: 20220919
  Transmission Date: 20221026
  Serious: Yes (Disabling)
  Sender: FDA-Public Use
  Company Number: US-PFIZER INC-202101361056

PATIENT
  Age: 44 Year
  Sex: Female

DRUGS (9)
  1. XELJANZ XR [Suspect]
     Active Substance: TOFACITINIB CITRATE
     Dosage: 11 MG, DAILY
     Route: 048
     Dates: start: 20211101
  2. DIAZEPAM [Concomitant]
     Active Substance: DIAZEPAM
     Dosage: UNK
  3. TIZANIDINE [Concomitant]
     Active Substance: TIZANIDINE
     Dosage: UNK
  4. BACLOFEN [Concomitant]
     Active Substance: BACLOFEN
     Dosage: UNK
  5. GABAPENTIN [Concomitant]
     Active Substance: GABAPENTIN
     Dosage: UNK
  6. HYDROCORTISONE [Concomitant]
     Active Substance: HYDROCORTISONE
     Dosage: UNK
  7. BOTOX [Concomitant]
     Active Substance: ONABOTULINUMTOXINA
     Dosage: UNK
  8. BUTRANS [Concomitant]
     Active Substance: BUPRENORPHINE
     Dosage: UNK
  9. BELBUCA [Concomitant]
     Active Substance: BUPRENORPHINE HYDROCHLORIDE

REACTIONS (3)
  - Illness [Unknown]
  - Drug ineffective [Unknown]
  - Disease progression [Unknown]
